FAERS Safety Report 25721743 (Version 2)
Quarter: 2025Q3

REPORT INFORMATION
  Report Type: Spontaneous
  Country: US (occurrence: US)
  Receive Date: 20250825
  Receipt Date: 20250825
  Transmission Date: 20251021
  Serious: Yes (Death, Other)
  Sender: ASTELLAS
  Company Number: US-ASTELLAS-2025-AER-043369

PATIENT
  Age: 84 Year
  Sex: Male

DRUGS (1)
  1. PADCEV [Suspect]
     Active Substance: ENFORTUMAB VEDOTIN-EJFV
     Indication: Bladder cancer
     Dosage: 2 VIALS OF 20 MG AND 1 VIAL OF 30 MG, TOTAL OF 70 MG EVERY 21 DAYS
     Route: 042
     Dates: start: 20241210, end: 20250407

REACTIONS (4)
  - Death [Fatal]
  - Malignant neoplasm progression [Not Recovered/Not Resolved]
  - Intercepted product preparation error [Unknown]
  - Inappropriate schedule of product administration [Unknown]

NARRATIVE: CASE EVENT DATE: 20250331
